FAERS Safety Report 24987509 (Version 2)
Quarter: 2025Q2

REPORT INFORMATION
  Report Type: Spontaneous
  Country: JP (occurrence: JP)
  Receive Date: 20250219
  Receipt Date: 20250409
  Transmission Date: 20250717
  Serious: Yes (Death)
  Sender: ELI LILLY AND CO
  Company Number: JP-ELI_LILLY_AND_COMPANY-JP202502012227

PATIENT
  Age: 81 Year
  Sex: Female
  Weight: 56.4 kg

DRUGS (12)
  1. OLUMIANT [Suspect]
     Active Substance: BARICITINIB
     Indication: Rheumatoid arthritis
     Dosage: 4 MG, DAILY
     Route: 048
     Dates: start: 20250201, end: 20250204
  2. SOLU-MEDROL [Concomitant]
     Active Substance: METHYLPREDNISOLONE SODIUM SUCCINATE
     Indication: Rheumatoid arthritis
     Route: 041
     Dates: start: 20250129, end: 20250131
  3. SOLU-MEDROL [Concomitant]
     Active Substance: METHYLPREDNISOLONE SODIUM SUCCINATE
     Route: 041
     Dates: start: 20250201, end: 20250204
  4. SOLU-MEDROL [Concomitant]
     Active Substance: METHYLPREDNISOLONE SODIUM SUCCINATE
     Route: 041
     Dates: start: 20250205, end: 20250205
  5. PROGRAF [Concomitant]
     Active Substance: TACROLIMUS
     Indication: Rheumatoid arthritis
     Route: 048
     Dates: start: 20250201, end: 20250203
  6. PROGRAF [Concomitant]
     Active Substance: TACROLIMUS
     Dates: start: 20250204, end: 20250204
  7. IGURATIMOD [Concomitant]
     Active Substance: IGURATIMOD
     Indication: Rheumatoid arthritis
     Route: 048
     Dates: start: 20220510, end: 20250203
  8. LEVOTHYROXINE SODIUM [Concomitant]
     Active Substance: LEVOTHYROXINE SODIUM
     Indication: Hypothyroidism
     Route: 048
     Dates: end: 20250205
  9. ELIQUIS [Concomitant]
     Active Substance: APIXABAN
     Indication: Deep vein thrombosis
     Route: 048
     Dates: start: 20250124, end: 20250205
  10. MICAFUNGIN SODIUM [Concomitant]
     Active Substance: MICAFUNGIN SODIUM
     Indication: Fungal infection
     Route: 041
     Dates: start: 20250203, end: 20250205
  11. VANCOMYCIN [Concomitant]
     Active Substance: VANCOMYCIN
     Indication: Pneumonia bacterial
     Route: 041
     Dates: start: 20250203, end: 20250204
  12. PIPERACILLIN SODIUM\TAZOBACTAM SODIUM [Concomitant]
     Active Substance: PIPERACILLIN SODIUM\TAZOBACTAM SODIUM
     Indication: Pneumonia bacterial
     Route: 041
     Dates: start: 20250201, end: 20250204

REACTIONS (1)
  - Interstitial lung disease [Fatal]
